FAERS Safety Report 10097145 (Version 1)
Quarter: 2014Q2

REPORT INFORMATION
  Report Type: Spontaneous
  Country: US (occurrence: US)
  Receive Date: 20140422
  Receipt Date: 20140422
  Transmission Date: 20141212
  Serious: Yes (Hospitalization, Other)
  Sender: FDA-Public Use
  Company Number: US-GILEAD-2014-0100161

PATIENT
  Sex: Female

DRUGS (23)
  1. LETAIRIS [Suspect]
     Indication: PULMONARY HYPERTENSION
     Dosage: 10 MG, QD
     Route: 065
     Dates: start: 20130916
  2. DIGOXIN [Concomitant]
  3. VERAPAMIL [Concomitant]
  4. TRAMADOL [Concomitant]
  5. GABAPENTIN [Concomitant]
  6. AVASTIN                            /00848101/ [Concomitant]
  7. OMEPRAZOLE [Concomitant]
  8. ADCIRCA [Concomitant]
  9. CELEBREX [Concomitant]
  10. VICODIN [Concomitant]
  11. LISINOPRIL [Concomitant]
  12. METOPROLOL [Concomitant]
  13. LIPITOR [Concomitant]
  14. METHOTREXATE [Concomitant]
  15. LEUCOVORIN                         /00566701/ [Concomitant]
  16. WARFARIN [Concomitant]
  17. COSOPT [Concomitant]
  18. LOTEMAX [Concomitant]
  19. BRIMONIDINE [Concomitant]
  20. XALATAN [Concomitant]
  21. ASPIRIN [Concomitant]
  22. VITAMIN D                          /00107901/ [Concomitant]
  23. CALCIUM [Concomitant]

REACTIONS (3)
  - Bronchitis [Unknown]
  - Ear pain [Unknown]
  - Anaemia [Unknown]
